FAERS Safety Report 21846870 (Version 1)
Quarter: 2023Q1

REPORT INFORMATION
  Report Type: Spontaneous
  Country: US (occurrence: None)
  Receive Date: 20230110
  Receipt Date: 20230110
  Transmission Date: 20230418
  Serious: Yes (unspecified)
  Sender: FDA-Public Use
  Company Number: None

PATIENT
  Age: 75 Year
  Sex: Male

DRUGS (1)
  1. INSULIN GLARGINE [Suspect]
     Active Substance: INSULIN GLARGINE
     Indication: Diabetes mellitus
     Dosage: OTHER STRENGTH : 100UNT/ML;?
     Dates: start: 20221221

REACTIONS (2)
  - Hypoglycaemia [None]
  - Therapy change [None]

NARRATIVE: CASE EVENT DATE: 20221230
